FAERS Safety Report 4633770-8 (Version None)
Quarter: 2005Q2

REPORT INFORMATION
  Report Type: 
  Country: None (occurrence: None)
  Receive Date: 20050331
  Receipt Date: 20040325
  Transmission Date: 20051028
  Serious: Yes (Other)
  Sender: FDA-Public Use
  Company Number: 200313986BCC

PATIENT
  Age: 57 Year
  Sex: Female
  Weight: 76.6579 kg

DRUGS (7)
  1. ALEVE [Suspect]
     Indication: ARTHRALGIA
     Dosage: 440 MG, QD, ORAL
     Route: 048
     Dates: start: 20030729
  2. ROLAIDS (DIHYDROXYALUMINIUM SODIUM CARBONATE) [Suspect]
     Dates: start: 20030801
  3. MEDICATIONS FOR ARTHRITIS [Concomitant]
  4. MULTI-VITAMIN [Concomitant]
  5. COENZYME Q10 [Concomitant]
  6. HAWTHORNEBERRY [Concomitant]
  7. VIOXX [Concomitant]

REACTIONS (3)
  - ALANINE AMINOTRANSFERASE INCREASED [None]
  - ASPARTATE AMINOTRANSFERASE INCREASED [None]
  - GAMMA-GLUTAMYLTRANSFERASE INCREASED [None]
